FAERS Safety Report 7039666-9 (Version None)
Quarter: 2010Q4

REPORT INFORMATION
  Report Type: 
  Country: None (occurrence: None)
  Receive Date: 20101012
  Receipt Date: 20101006
  Transmission Date: 20110411
  Serious: Yes (Other)
  Sender: FDA-Public Use
  Company Number: B0678211A

PATIENT
  Sex: Male

DRUGS (1)
  1. FLIXONASE [Suspect]
     Indication: RHINITIS
     Route: 045
     Dates: start: 20080401

REACTIONS (2)
  - GLAUCOMA [None]
  - VISUAL ACUITY REDUCED [None]
